FAERS Safety Report 6186602-3 (Version None)
Quarter: 2009Q2

REPORT INFORMATION
  Report Type: 
  Country: None (occurrence: None)
  Receive Date: 20090507
  Receipt Date: 20090507
  Transmission Date: 20091009
  Serious: Yes (Other)
  Sender: FDA-Public Use
  Company Number: None

PATIENT
  Age: 61 Year
  Sex: Female

DRUGS (6)
  1. METFORMIN HYDROCHLORIDE [Suspect]
     Indication: DIABETES MELLITUS
     Dosage: ONE TABLET THREE TIMES A DAY
     Dates: start: 20090101, end: 20090301
  2. ENALAPRIL MALEATE AND HYDROCHLOROTHIAZIDE [Concomitant]
  3. ALLOPURINOL [Concomitant]
  4. ALENDRONATE SODIUM/VITAMIN D3 [Concomitant]
  5. SIMVASTATIN [Concomitant]
  6. OMEPRAZOLE [Concomitant]

REACTIONS (2)
  - BLOOD GLUCOSE INCREASED [None]
  - PRODUCT SUBSTITUTION ISSUE [None]
